FAERS Safety Report 17400349 (Version 6)
Quarter: 2020Q4

REPORT INFORMATION
  Report Type: Report from Study
  Country: CO (occurrence: CO)
  Receive Date: 20200211
  Receipt Date: 20201005
  Transmission Date: 20210113
  Serious: Yes (Hospitalization)
  Sender: FDA-Public Use
  Company Number: CO-AUROBINDO-AUR-APL-2019-075681

PATIENT
  Age: 54 Year
  Sex: Female

DRUGS (6)
  1. FOLOTYN [Suspect]
     Active Substance: PRALATREXATE
     Dosage: UNK
     Route: 042
     Dates: end: 20200326
  2. FOLIC ACID. [Concomitant]
     Active Substance: FOLIC ACID
     Indication: PRODUCT USED FOR UNKNOWN INDICATION
     Dosage: UNK
     Route: 065
  3. FOLOTYN [Suspect]
     Active Substance: PRALATREXATE
     Indication: PERIPHERAL T-CELL LYMPHOMA UNSPECIFIED
     Dosage: 45 MILLIGRAM, (CYCLE 13, WEEK 2)
     Route: 042
     Dates: start: 201805, end: 20200109
  4. VITAMIN B12 [Concomitant]
     Active Substance: CYANOCOBALAMIN
     Indication: PRODUCT USED FOR UNKNOWN INDICATION
     Dosage: UNK
     Route: 065
  5. FOLOTYN [Suspect]
     Active Substance: PRALATREXATE
     Dosage: 45 MILLIGRAM (IN WEEK 5 OF CYCLE 15)
     Route: 042
  6. FOLOTYN [Suspect]
     Active Substance: PRALATREXATE
     Dosage: 45 MILLIGRAM (IN WEEK 5 OF CYCLE 16)
     Route: 042

REACTIONS (10)
  - Fall [Unknown]
  - Hiatus hernia [Recovering/Resolving]
  - Ulna fracture [Unknown]
  - Pain [Not Recovered/Not Resolved]
  - Nasopharyngitis [Unknown]
  - Gastric disorder [Recovering/Resolving]
  - Skin depigmentation [Not Recovered/Not Resolved]
  - Telangiectasia [Not Recovered/Not Resolved]
  - Skin burning sensation [Not Recovered/Not Resolved]
  - Pruritus [Not Recovered/Not Resolved]

NARRATIVE: CASE EVENT DATE: 20200117
